FAERS Safety Report 6085772-5 (Version None)
Quarter: 2009Q1

REPORT INFORMATION
  Report Type: 
  Country: None (occurrence: None)
  Receive Date: 20090220
  Receipt Date: 20090212
  Transmission Date: 20090719
  Serious: Yes (Hospitalization)
  Sender: FDA-Public Use
  Company Number: US-BIOGENIDEC-2009BI004779

PATIENT
  Age: 48 Year
  Sex: Male
  Weight: 93 kg

DRUGS (8)
  1. TYSABRI [Suspect]
     Indication: CROHN'S DISEASE
     Route: 042
     Dates: start: 20080623, end: 20080623
  2. TINCTURE OF OPIUM [Concomitant]
     Route: 048
  3. PAROXETINE HCL [Concomitant]
     Route: 048
  4. PROTONIX [Concomitant]
     Route: 048
  5. OMEGA FISH OIL [Concomitant]
     Route: 048
  6. VITAMIN A [Concomitant]
     Route: 048
  7. OXYCODONE [Concomitant]
  8. PREDNISONE [Concomitant]
     Route: 048

REACTIONS (5)
  - CROHN'S DISEASE [None]
  - INTESTINAL ISCHAEMIA [None]
  - INTESTINAL OBSTRUCTION [None]
  - KLEBSIELLA BACTERAEMIA [None]
  - PERITONITIS [None]
